FAERS Safety Report 26011693 (Version 1)
Quarter: 2025Q4

REPORT INFORMATION
  Report Type: Spontaneous
  Country: JP (occurrence: JP)
  Receive Date: 20251107
  Receipt Date: 20251107
  Transmission Date: 20260118
  Serious: Yes (Hospitalization, Other)
  Sender: ACCORD
  Company Number: JP-Accord-511401

PATIENT
  Age: 66 Year
  Sex: Male

DRUGS (8)
  1. BORTEZOMIB [Suspect]
     Active Substance: BORTEZOMIB
     Indication: Plasma cell myeloma
  2. LENALIDOMIDE [Suspect]
     Active Substance: LENALIDOMIDE
     Indication: Plasma cell myeloma
  3. DEXAMETHASONE [Suspect]
     Active Substance: DEXAMETHASONE
     Indication: Plasma cell myeloma
  4. NIFEDIPINE [Concomitant]
     Active Substance: NIFEDIPINE
  5. AZILSARTAN KAMEDOXOMIL [Concomitant]
     Active Substance: AZILSARTAN KAMEDOXOMIL
  6. BISOPROLOL [Concomitant]
     Active Substance: BISOPROLOL
  7. VONOPRAZAN [Concomitant]
     Active Substance: VONOPRAZAN
  8. SODIUM PICOSULFATE [Concomitant]
     Active Substance: SODIUM PICOSULFATE

REACTIONS (7)
  - Toxic shock syndrome streptococcal [Recovered/Resolved]
  - Cardiomegaly [Recovered/Resolved]
  - Pulmonary congestion [Recovered/Resolved]
  - Renal impairment [Unknown]
  - Leukopenia [Unknown]
  - Thrombocytopenia [Unknown]
  - Anaemia [Unknown]
